FAERS Safety Report 17733805 (Version 1)
Quarter: 2020Q2

REPORT INFORMATION
  Report Type: Spontaneous
  Country: US (occurrence: US)
  Receive Date: 20200430
  Receipt Date: 20200430
  Transmission Date: 20200714
  Serious: No
  Sender: FDA-Public Use
  Company Number: None

PATIENT
  Age: 82 Year
  Sex: Male
  Weight: 76 kg

DRUGS (1)
  1. EMPAGLIFLOZIN (EMPAGLIFLOZIN 25MG TAB) [Suspect]
     Active Substance: EMPAGLIFLOZIN
     Route: 048
     Dates: start: 20191125, end: 20191224

REACTIONS (3)
  - Weight decreased [None]
  - Diarrhoea [None]
  - Cough [None]

NARRATIVE: CASE EVENT DATE: 20191224
